FAERS Safety Report 8859247 (Version 1)
Quarter: 2012Q4

REPORT INFORMATION
  Report Type: 
  Country: DE (occurrence: DE)
  Receive Date: 20121024
  Receipt Date: 20121024
  Transmission Date: 20130627
  Serious: Yes (Life-Threatening, Hospitalization)
  Sender: FDA-Public Use
  Company Number: DE-UCBSA-066208

PATIENT
  Age: 79 Year
  Sex: Female

DRUGS (10)
  1. KEPPRA [Suspect]
     Indication: EPILEPSY
     Route: 048
     Dates: start: 20120808, end: 20120827
  2. KEPPRA [Suspect]
     Indication: EPILEPSY
     Route: 048
     Dates: start: 20120828, end: 20120905
  3. KEPPRA [Suspect]
     Indication: EPILEPSY
     Dosage: WEANED OFF
     Route: 048
     Dates: start: 201209, end: 20120907
  4. ERGENYL [Suspect]
     Indication: EPILEPSY
     Route: 048
     Dates: start: 20120808
  5. ALLOPURINOL [Concomitant]
     Route: 048
  6. IBUPROFEN [Concomitant]
     Route: 048
     Dates: start: 20120808, end: 20120827
  7. SPIRONOLACTON [Concomitant]
     Route: 048
     Dates: end: 20120827
  8. PANTOZOL [Concomitant]
     Route: 048
     Dates: start: 20120816
  9. CALZITRAT [Concomitant]
     Route: 048
     Dates: start: 20120808
  10. UNACID [Concomitant]
     Route: 048
     Dates: start: 20120816, end: 20120824

REACTIONS (5)
  - Sopor [Recovered/Resolved with Sequelae]
  - Toxicity to various agents [Recovering/Resolving]
  - Hypernatraemia [Recovering/Resolving]
  - Apathy [Unknown]
  - Fatigue [Unknown]
